FAERS Safety Report 6802986-4 (Version None)
Quarter: 2010Q2

REPORT INFORMATION
  Report Type: 
  Country: None (occurrence: None)
  Receive Date: 20100628
  Receipt Date: 20100528
  Transmission Date: 20101027
  Serious: No
  Sender: FDA-Public Use
  Company Number: US-BAYER-201016245BCC

PATIENT
  Age: 67 Year
  Sex: Female
  Weight: 59 kg

DRUGS (4)
  1. ALEVE (CAPLET) [Suspect]
     Indication: DRUG USE FOR UNKNOWN INDICATION
     Dosage: UNIT DOSE: 220 MG
     Route: 048
     Dates: start: 20100527
  2. SUTRALENE [Concomitant]
     Route: 065
  3. LISINOPRIL [Concomitant]
     Route: 065
  4. BEER [Concomitant]
     Route: 048
     Dates: start: 20100527

REACTIONS (2)
  - CHEST PAIN [None]
  - DYSPNOEA [None]
